FAERS Safety Report 18337837 (Version 2)
Quarter: 2020Q4

REPORT INFORMATION
  Report Type: Other
  Country: US (occurrence: US)
  Receive Date: 20201002
  Receipt Date: 20201124
  Transmission Date: 20210113
  Serious: Yes (Other)
  Sender: FDA-Public Use
  Company Number: US-ROCHE-2687381

PATIENT
  Sex: Male
  Weight: 113.5 kg

DRUGS (4)
  1. PENCICLOVIR. [Concomitant]
     Active Substance: PENCICLOVIR
  2. RITUXAN [Suspect]
     Active Substance: RITUXIMAB
     Indication: B-CELL LYMPHOMA
     Route: 065
  3. VENCLEXTA [Suspect]
     Active Substance: VENETOCLAX
     Indication: WALDENSTROM^S MACROGLOBULINAEMIA
     Dosage: TAKE 8 TABLET(S) BY MOUTH DAILY
     Route: 048
     Dates: start: 202001
  4. VENCLEXTA [Suspect]
     Active Substance: VENETOCLAX
     Indication: PSORIASIS

REACTIONS (5)
  - Off label use [Unknown]
  - Atrial fibrillation [Recovered/Resolved]
  - Dermatitis contact [Recovering/Resolving]
  - Intentional product use issue [Unknown]
  - Hernia [Recovering/Resolving]

NARRATIVE: CASE EVENT DATE: 2020
